FAERS Safety Report 5866619-6 (Version None)
Quarter: 2008Q3

REPORT INFORMATION
  Report Type: 
  Country: None (occurrence: None)
  Receive Date: 20080902
  Receipt Date: 20061115
  Transmission Date: 20090109
  Serious: No
  Sender: FDA-Public Use
  Company Number: US-BAYER-200830738NA

PATIENT
  Sex: Female

DRUGS (3)
  1. AVELOX [Suspect]
     Indication: PNEUMONIA
     Dates: start: 20060801
  2. ENBREL [Concomitant]
  3. METHOTREXATE [Concomitant]

REACTIONS (2)
  - ANOSMIA [None]
  - PAROSMIA [None]
